FAERS Safety Report 6770477-5 (Version None)
Quarter: 2010Q2

REPORT INFORMATION
  Report Type: 
  Country: None (occurrence: None)
  Receive Date: 20100615
  Receipt Date: 20100324
  Transmission Date: 20101027
  Serious: Yes (Hospitalization, Other)
  Sender: FDA-Public Use
  Company Number: US-BAYER-200939098NA

PATIENT
  Age: 43 Year
  Sex: Female
  Weight: 98 kg

DRUGS (9)
  1. YASMIN [Suspect]
     Indication: AMENORRHOEA
     Dates: start: 20061102, end: 20070817
  2. CRESTOR [Concomitant]
     Dosage: TOTAL DAILY DOSE: 10 MG  UNIT DOSE: 10 MG
  3. LEXAPRO [Concomitant]
  4. LISINOPRIL [Concomitant]
     Dosage: TOTAL DAILY DOSE: 20 MG  UNIT DOSE: 20 MG
     Dates: start: 20071001
  5. ASPIRINE [Concomitant]
     Indication: ANTIPLATELET THERAPY
  6. NICOTINE [Concomitant]
     Dates: start: 20071030
  7. AGGRENOX [Concomitant]
     Indication: ANTIPLATELET THERAPY
     Dosage: 25/200
  8. ZOCOR [Concomitant]
  9. ZOLOFT [Concomitant]

REACTIONS (8)
  - APHASIA [None]
  - BLOOD PRESSURE SYSTOLIC INCREASED [None]
  - DYSPHAGIA [None]
  - HEADACHE [None]
  - HYPOAESTHESIA [None]
  - ISCHAEMIC STROKE [None]
  - NERVOUS SYSTEM DISORDER [None]
  - SENSATION OF HEAVINESS [None]
